FAERS Safety Report 8974949 (Version 1)
Quarter: 2012Q4

REPORT INFORMATION
  Report Type: 
  Country: ES (occurrence: ES)
  Receive Date: 20121219
  Receipt Date: 20121219
  Transmission Date: 20130627
  Serious: Yes (Other)
  Sender: FDA-Public Use
  Company Number: ES-US-EMD SERONO, INC.-7182342

PATIENT
  Age: 34 Year
  Sex: Female

DRUGS (3)
  1. GONAL-F [Suspect]
     Indication: IN VITRO FERTILISATION
     Dosage: 225 U
     Dates: start: 201010
  2. PROGESTERONE [Suspect]
     Indication: IN VITRO FERTILISATION
     Dates: start: 2010
  3. GONADOTROPIN CHORIONIC HUMAN\MENOTROPINS [Suspect]
     Indication: IN VITRO FERTILISATION
     Dates: start: 201010

REACTIONS (5)
  - Caesarean section [Recovered/Resolved]
  - Amniorrhexis [Recovered/Resolved]
  - Twin pregnancy [Recovered/Resolved]
  - Maternal exposure during pregnancy [Recovered/Resolved]
  - Premature delivery [None]
